FAERS Safety Report 4777013-3 (Version None)
Quarter: 2005Q3

REPORT INFORMATION
  Report Type: 
  Country: None (occurrence: None)
  Receive Date: 20050923
  Receipt Date: 20031218
  Transmission Date: 20060218
  Serious: Yes (Other)
  Sender: FDA-Public Use
  Company Number: KR-GLAXOSMITHKLINE-B0393263A

PATIENT
  Age: 28 Year
  Sex: Male

DRUGS (3)
  1. LAMIVUDINE [Suspect]
     Indication: HIV INFECTION
     Dosage: 300MG PER DAY
     Route: 048
     Dates: start: 20031103, end: 20040301
  2. ZIDOVUDINE [Suspect]
     Indication: HIV INFECTION
     Dosage: 1200MG PER DAY
     Route: 048
     Dates: start: 20031103, end: 20040301
  3. INDINAVIR SULFATE [Suspect]
     Indication: HIV INFECTION
     Dosage: 2400MG PER DAY
     Route: 048
     Dates: start: 20031103, end: 20040301

REACTIONS (1)
  - LEUKOPENIA [None]
